FAERS Safety Report 4435421-4 (Version None)
Quarter: 2004Q3

REPORT INFORMATION
  Report Type: 
  Country: None (occurrence: None)
  Receive Date: 20040826
  Receipt Date: 20040817
  Transmission Date: 20050211
  Serious: No
  Sender: FDA-Public Use
  Company Number: 04H-144-0270910-00

PATIENT
  Sex: 0

DRUGS (2)
  1. DOBUTAMINE HCL [Suspect]
     Indication: STRESS ECHOCARDIOGRAM
     Dosage: 10 MCG/KG/MIN, NOT REPORTED, INTRAVENOUS;  10 MCG/KG/MIN, EVERY 3 MIN. UP TO 40 MCG/KG/MIN, INTRAVEN
     Route: 042
  2. ATROPINE [Suspect]
     Indication: STRESS ECHOCARDIOGRAM
     Dosage: 1 MG, ONCE, INTRAVENOUS
     Route: 042

REACTIONS (2)
  - LEFT VENTRICULAR FAILURE [None]
  - POST PROCEDURAL COMPLICATION [None]
